FAERS Safety Report 25386137 (Version 2)
Quarter: 2025Q2

REPORT INFORMATION
  Report Type: Spontaneous
  Country: CL (occurrence: CL)
  Receive Date: 20250602
  Receipt Date: 20250602
  Transmission Date: 20250717
  Serious: Yes (Hospitalization)
  Sender: BIOMARIN
  Company Number: CL-SA-2025SA073335

PATIENT

DRUGS (2)
  1. LARONIDASE [Suspect]
     Active Substance: LARONIDASE
     Indication: Mucopolysaccharidosis I
     Dosage: 5.8 MG (2 VIALS), QW
     Route: 042
     Dates: end: 20250227
  2. LARONIDASE [Suspect]
     Active Substance: LARONIDASE
     Dosage: 5.8 MG, QW
     Route: 042
     Dates: start: 20250227

REACTIONS (10)
  - Eyelid rash [Unknown]
  - Rash [Unknown]
  - Tachycardia [Unknown]
  - Oxygen saturation decreased [Unknown]
  - Rhinorrhoea [Unknown]
  - Pruritus [Unknown]
  - Cough [Unknown]
  - Urticaria [Recovered/Resolved]
  - Rash [Recovered/Resolved]
  - Rash [Recovered/Resolved]

NARRATIVE: CASE EVENT DATE: 20250227
